FAERS Safety Report 5246911-9 (Version None)
Quarter: 2007Q1

REPORT INFORMATION
  Report Type: 
  Country: None (occurrence: None)
  Receive Date: 20070226
  Receipt Date: 20070220
  Transmission Date: 20070707
  Serious: Yes (Hospitalization)
  Sender: FDA-Public Use
  Company Number: JP-ROXANE LABORATORIES, INC-2007-BP-02593RO

PATIENT
  Age: 30 Year
  Sex: Female

DRUGS (4)
  1. CYCLOPHOSPHAMIDE [Suspect]
     Indication: PULMONARY ALVEOLAR HAEMORRHAGE
     Route: 042
  2. METHYLPREDNISOLONE 16MG TAB [Suspect]
     Indication: LUPUS NEPHRITIS
  3. IMMUNOSUPPRESSIVE AGENTS [Suspect]
     Indication: SYSTEMIC LUPUS ERYTHEMATOSUS
     Dates: start: 19931001
  4. PREDNISOLONE [Suspect]
     Route: 048

REACTIONS (5)
  - COLITIS [None]
  - CYTOMEGALOVIRUS COLITIS [None]
  - FUNGAL DNA TEST POSITIVE [None]
  - HYPOXIA [None]
  - LARGE INTESTINAL ULCER [None]
